FAERS Safety Report 9043416 (Version 1)
Quarter: 2013Q1

REPORT INFORMATION
  Report Type: Report from Study
  Country: US (occurrence: US)
  Receive Date: 20130129
  Receipt Date: 20130129
  Transmission Date: 20140127
  Serious: No
  Sender: FDA-Public Use
  Company Number: US-ABBOTT-12P-163-0909328-00

PATIENT
  Age: 37 Year
  Sex: Female

DRUGS (4)
  1. HUMIRA 40 MG/0.8 ML PEN [Suspect]
     Indication: CROHN^S DISEASE
     Dosage: DAY 1 LOADING DOSE
     Dates: start: 20120218, end: 20120218
  2. HUMIRA 40 MG/0.8 ML PEN [Suspect]
     Dosage: DAY 2 LOADING DOSE
  3. IMURAN [Concomitant]
     Indication: CROHN^S DISEASE
     Dosage: 50 MG DAILY
     Dates: start: 20120218
  4. IMURAN [Concomitant]

REACTIONS (2)
  - Oedema [Not Recovered/Not Resolved]
  - Pain in extremity [Unknown]
